FAERS Safety Report 4324844-X (Version None)
Quarter: 2004Q1

REPORT INFORMATION
  Report Type: 
  Country: None (occurrence: None)
  Receive Date: 20040323
  Receipt Date: 20040211
  Transmission Date: 20041129
  Serious: No
  Sender: FDA-Public Use
  Company Number: US_0402100727

PATIENT
  Age: 63 Year
  Sex: Male
  Weight: 105 kg

DRUGS (2)
  1. CIALIS [Suspect]
     Dosage: 20 MG/ AS NEEDED
     Dates: end: 20040211
  2. VIAGRA [Concomitant]

REACTIONS (3)
  - DRUG INEFFECTIVE [None]
  - FLUSHING [None]
  - NASAL CONGESTION [None]
